FAERS Safety Report 8352229-8 (Version None)
Quarter: 2012Q2

REPORT INFORMATION
  Report Type: 
  Country: None (occurrence: None)
  Receive Date: 20120509
  Receipt Date: 20120424
  Transmission Date: 20120825
  Serious: Yes (Hospitalization)
  Sender: FDA-Public Use
  Company Number: NSR_00539_2012

PATIENT
  Age: 14 Year
  Sex: Female

DRUGS (6)
  1. ACETAMINOPHEN [Concomitant]
  2. ORS [Concomitant]
  3. METOCLOPRAMIDE [Suspect]
     Indication: DIARRHOEA
     Dosage: (10 MG TID)
     Dates: end: 20100830
  4. METOCLOPRAMIDE [Suspect]
     Indication: VOMITING
     Dosage: (10 MG TID)
     Dates: end: 20100830
  5. METOCLOPRAMIDE [Suspect]
     Indication: PYREXIA
     Dosage: (10 MG TID)
     Dates: end: 20100830
  6. METRONIDAZOLE [Concomitant]

REACTIONS (6)
  - OCULOGYRIC CRISIS [None]
  - DYSPHAGIA [None]
  - ENCEPHALITIS [None]
  - HEADACHE [None]
  - DYSTONIA [None]
  - AGITATION [None]
